FAERS Safety Report 4420945-6 (Version None)
Quarter: 2004Q3

REPORT INFORMATION
  Report Type: 
  Country: None (occurrence: None)
  Receive Date: 20040809
  Receipt Date: 20040728
  Transmission Date: 20050211
  Serious: Yes (Death, Life-Threatening, Hospitalization)
  Sender: FDA-Public Use
  Company Number: US-JNJFOC-20040503932

PATIENT
  Age: 73 Year
  Sex: Male

DRUGS (12)
  1. REMICADE [Suspect]
     Route: 042
  2. REMICADE [Suspect]
     Indication: CROHN'S DISEASE
     Route: 042
  3. VICODEN [Concomitant]
     Route: 049
  4. VICODEN [Concomitant]
     Indication: PAIN
     Dosage: AS NEEDED
     Route: 049
  5. FOLIC ACID [Concomitant]
     Route: 049
  6. PAXIL [Concomitant]
     Dosage: CONTROLLED RELEASE
     Route: 049
  7. ASACOL [Concomitant]
     Route: 049
  8. BENADRYL [Concomitant]
     Indication: PREMEDICATION
     Route: 040
  9. PRIMSOL [Concomitant]
     Route: 049
  10. ACETAMINOPHEN [Concomitant]
     Indication: PREMEDICATION
     Dosage: 2 TABS
     Route: 049
  11. PREVACID [Concomitant]
  12. NEURONTIN [Concomitant]

REACTIONS (12)
  - ACUTE RESPIRATORY DISTRESS SYNDROME [None]
  - ADRENAL INSUFFICIENCY [None]
  - BRADYCARDIA [None]
  - CARDIO-RESPIRATORY ARREST [None]
  - DIALYSIS [None]
  - DISSEMINATED INTRAVASCULAR COAGULATION [None]
  - MULTI-ORGAN FAILURE [None]
  - PLEURAL EFFUSION [None]
  - PNEUMONIA [None]
  - RENAL FAILURE ACUTE [None]
  - SEPTIC SHOCK [None]
  - TACHYCARDIA [None]
